FAERS Safety Report 6760783-2 (Version None)
Quarter: 2010Q2

REPORT INFORMATION
  Report Type: 
  Country: None (occurrence: None)
  Receive Date: 20100608
  Receipt Date: 20100531
  Transmission Date: 20101027
  Serious: Yes (Other)
  Sender: FDA-Public Use
  Company Number: US-SANOFI-AVENTIS-2010SA031770

PATIENT
  Age: 46 Year
  Sex: Female

DRUGS (11)
  1. ELOXATIN [Suspect]
     Route: 042
     Dates: start: 20070601, end: 20070601
  2. ELOXATIN [Suspect]
     Route: 042
     Dates: start: 20070101, end: 20070101
  3. ELOXATIN [Suspect]
     Route: 042
     Dates: start: 20080601, end: 20080601
  4. ELOXATIN [Suspect]
     Route: 042
     Dates: start: 20081218, end: 20081218
  5. ELOXATIN [Suspect]
     Route: 042
     Dates: start: 20090513, end: 20090513
  6. XELODA [Suspect]
     Route: 065
     Dates: start: 20081218
  7. AVASTIN [Suspect]
     Route: 065
     Dates: start: 20070801
  8. FLUOROURACIL [Suspect]
     Route: 065
     Dates: start: 20090128, end: 20090901
  9. LEUCOVORIN CALCIUM [Suspect]
     Route: 065
     Dates: start: 20090128, end: 20090901
  10. IRINOTECAN [Suspect]
     Route: 065
     Dates: start: 20100505
  11. ZOFRAN [Concomitant]

REACTIONS (19)
  - ABDOMINAL PAIN UPPER [None]
  - APHAGIA [None]
  - BACK PAIN [None]
  - DRUG INTOLERANCE [None]
  - EPISTAXIS [None]
  - FATIGUE [None]
  - HYPERSENSITIVITY [None]
  - LIMB DEFORMITY [None]
  - MALIGNANT NEOPLASM PROGRESSION [None]
  - NEPHROLITHIASIS [None]
  - NEUROPATHY PERIPHERAL [None]
  - PAIN IN EXTREMITY [None]
  - PARAESTHESIA [None]
  - SKIN EXFOLIATION [None]
  - STOMATITIS [None]
  - TREMOR [None]
  - VOMITING [None]
  - WEIGHT DECREASED [None]
  - WOUND DEHISCENCE [None]
